FAERS Safety Report 4945631-5 (Version None)
Quarter: 2006Q1

REPORT INFORMATION
  Report Type: 
  Country: None (occurrence: None)
  Receive Date: 20060316
  Receipt Date: 20051005
  Transmission Date: 20060701
  Serious: Yes (Death, Hospitalization)
  Sender: FDA-Public Use
  Company Number: US-MERCK-0510USA05727

PATIENT
  Age: 53 Year
  Sex: Female
  Weight: 114 kg

DRUGS (1)
  1. VIOXX [Suspect]
     Indication: OSTEOARTHRITIS
     Route: 048
     Dates: start: 19990101, end: 20011015

REACTIONS (6)
  - BRONCHITIS [None]
  - CARDIOVASCULAR DISORDER [None]
  - DEATH [None]
  - DYSPNOEA [None]
  - LOSS OF CONSCIOUSNESS [None]
  - MASS [None]
